FAERS Safety Report 25477367 (Version 3)
Quarter: 2025Q3

REPORT INFORMATION
  Report Type: Spontaneous
  Country: AU (occurrence: AU)
  Receive Date: 20250625
  Receipt Date: 20250717
  Transmission Date: 20251020
  Serious: Yes (Other)
  Sender: TAKEDA
  Company Number: AU-TAKEDA-2025TUS056654

PATIENT
  Sex: Male
  Weight: 45 kg

DRUGS (3)
  1. INTUNIV [Suspect]
     Active Substance: GUANFACINE HYDROCHLORIDE
     Indication: Attention deficit hyperactivity disorder
     Dates: start: 20250513, end: 20250515
  2. INTUNIV [Suspect]
     Active Substance: GUANFACINE HYDROCHLORIDE
     Indication: Autism spectrum disorder
     Dosage: 1 MILLIGRAM, QD
     Dates: start: 20250613
  3. INTUNIV [Suspect]
     Active Substance: GUANFACINE HYDROCHLORIDE

REACTIONS (10)
  - Agitation [Recovered/Resolved]
  - Delirium [Recovered/Resolved]
  - Fear [Recovered/Resolved]
  - Feeling abnormal [Recovered/Resolved]
  - Hallucinations, mixed [Recovered/Resolved]
  - Nightmare [Recovered/Resolved]
  - Poor quality sleep [Recovered/Resolved]
  - Pyrexia [Recovered/Resolved]
  - Sleep terror [Recovered/Resolved]
  - Visual impairment [Recovered/Resolved]
